FAERS Safety Report 4843497-5 (Version None)
Quarter: 2005Q4

REPORT INFORMATION
  Report Type: 
  Country: None (occurrence: None)
  Receive Date: 20051202
  Receipt Date: 20051107
  Transmission Date: 20060501
  Serious: Yes (Hospitalization)
  Sender: FDA-Public Use
  Company Number: PHHO2005FR17445

PATIENT
  Age: 58 Year
  Sex: Male

DRUGS (8)
  1. NEORAL [Suspect]
     Indication: RENAL TRANSPLANT
     Dosage: 180 MG, BID
     Route: 048
     Dates: start: 20050922
  2. CORTANCYL [Suspect]
     Indication: RENAL TRANSPLANT
     Dosage: 10 MG, QD
     Route: 048
     Dates: start: 20050919
  3. CORTICOSTEROIDS [Suspect]
     Indication: RENAL TRANSPLANT
  4. DACLIZUMAB [Concomitant]
     Indication: RENAL TRANSPLANT
     Dosage: UNK, ONCE/SINGLE
     Route: 042
     Dates: start: 20050919, end: 20050919
  5. DACLIZUMAB [Concomitant]
     Dosage: UNK, ONCE/SINGLE
     Route: 042
     Dates: start: 20051003, end: 20051003
  6. MYCOPHENOLATE MOFETIL [Concomitant]
     Indication: RENAL TRANSPLANT
     Dosage: 2 G, QD
     Route: 048
     Dates: start: 20050919
  7. ESIDRIX [Concomitant]
     Dosage: UNK, UNK
     Dates: end: 20051101
  8. FUROSEMIDE [Concomitant]

REACTIONS (6)
  - CYTOMEGALOVIRUS TEST POSITIVE [None]
  - DIABETES MELLITUS INADEQUATE CONTROL [None]
  - FLUID RETENTION [None]
  - HYPERGLYCAEMIA [None]
  - RENAL IMPAIRMENT [None]
  - SODIUM RETENTION [None]
